FAERS Safety Report 25937137 (Version 2)
Quarter: 2025Q4

REPORT INFORMATION
  Report Type: Spontaneous
  Country: BR (occurrence: BR)
  Receive Date: 20251017
  Receipt Date: 20251027
  Transmission Date: 20260117
  Serious: Yes (Other)
  Sender: ABBVIE
  Company Number: BR-ABBOTT-2025A-1403107

PATIENT
  Sex: Female
  Weight: 64 kg

DRUGS (4)
  1. SYNTHROID [Suspect]
     Active Substance: LEVOTHYROXINE SODIUM
     Indication: Papillary thyroid cancer
     Dosage: 1 TABLET A DAY
     Route: 048
     Dates: start: 2009
  2. SYNTHROID [Suspect]
     Active Substance: LEVOTHYROXINE SODIUM
     Indication: Papillary thyroid cancer
     Dosage: 1 TABLET A DAY
     Route: 048
     Dates: start: 2009
  3. SYNTHROID [Suspect]
     Active Substance: LEVOTHYROXINE SODIUM
     Indication: Papillary thyroid cancer
     Route: 048
  4. SYNTHROID [Suspect]
     Active Substance: LEVOTHYROXINE SODIUM
     Indication: Papillary thyroid cancer
     Route: 048

REACTIONS (21)
  - Blood thyroid stimulating hormone increased [Not Recovered/Not Resolved]
  - Arthralgia [Unknown]
  - Confusional state [Recovering/Resolving]
  - Pain in extremity [Recovered/Resolved]
  - Hypoaesthesia [Recovered/Resolved]
  - Menopause [Unknown]
  - Product quality issue [Unknown]
  - Alopecia [Recovering/Resolving]
  - Swelling [Recovering/Resolving]
  - Cancer surgery [Unknown]
  - Dysstasia [Recovering/Resolving]
  - Mental disorder [Recovering/Resolving]
  - Arrhythmia [Recovered/Resolved]
  - Panic attack [Recovering/Resolving]
  - Drug ineffective [Unknown]
  - Fatigue [Recovering/Resolving]
  - Depression [Recovering/Resolving]
  - Nail disorder [Not Recovered/Not Resolved]
  - Pain in extremity [Recovering/Resolving]
  - Overweight [Unknown]
  - Back pain [Not Recovered/Not Resolved]

NARRATIVE: CASE EVENT DATE: 20250501
